FAERS Safety Report 25492956 (Version 1)
Quarter: 2025Q2

REPORT INFORMATION
  Report Type: Spontaneous
  Country: US (occurrence: US)
  Receive Date: 20250630
  Receipt Date: 20250630
  Transmission Date: 20250717
  Serious: No
  Sender: ITALFARMACO SPA
  Company Number: US-ITALFARMACO SPA-2179613

PATIENT
  Age: 19 Year
  Sex: Male

DRUGS (1)
  1. DUVYZAT [Suspect]
     Active Substance: GIVINOSTAT
     Indication: Duchenne muscular dystrophy

REACTIONS (5)
  - Decreased appetite [Recovered/Resolved]
  - Laboratory test abnormal [Unknown]
  - Weight decreased [Unknown]
  - Nausea [Unknown]
  - Abdominal pain upper [Unknown]
